FAERS Safety Report 10185463 (Version 1)
Quarter: 2014Q2

REPORT INFORMATION
  Report Type: Spontaneous
  Country: FR (occurrence: FR)
  Receive Date: 20140521
  Receipt Date: 20140521
  Transmission Date: 20141212
  Serious: Yes (Hospitalization)
  Sender: FDA-Public Use
  Company Number: FR-SA-2014SA063733

PATIENT
  Age: 58 Year
  Sex: Male

DRUGS (16)
  1. STILNOX [Suspect]
     Indication: INTENTIONAL OVERDOSE
     Route: 048
     Dates: start: 20140428, end: 20140428
  2. DOMPERIDONE [Suspect]
     Indication: INTENTIONAL OVERDOSE
     Route: 048
     Dates: start: 20140428, end: 20140428
  3. CORTANCYL [Suspect]
     Indication: INTENTIONAL OVERDOSE
     Route: 048
     Dates: start: 20140428, end: 20140428
  4. SERESTA [Suspect]
     Indication: INTENTIONAL OVERDOSE
     Route: 048
     Dates: start: 20140428, end: 20140428
  5. OLMETEC [Concomitant]
     Dosage: DOSE- 10
     Route: 065
  6. KARDEGIC [Concomitant]
     Dosage: DOSE- 75
     Route: 065
  7. METFORMIN [Concomitant]
     Dosage: DOSE- 850
     Route: 065
  8. ONGLYZA [Concomitant]
     Route: 065
  9. LEVOTHYROX [Concomitant]
     Dosage: DOSE- 25
     Route: 065
  10. PAROXETINE [Concomitant]
     Route: 065
  11. DUOTRAV [Concomitant]
     Route: 065
  12. LYRICA [Concomitant]
     Dosage: DOSE- 150
     Route: 065
  13. TRAMADOL [Concomitant]
     Route: 065
  14. ALFUZOSIN HYDROCHLORIDE [Concomitant]
     Route: 065
  15. ADENURIC [Concomitant]
     Route: 065
  16. BRICANYL [Concomitant]
     Route: 065

REACTIONS (3)
  - Bradypnoea [Recovered/Resolved]
  - Somnolence [Recovered/Resolved]
  - Intentional overdose [Unknown]
